FAERS Safety Report 9808327 (Version 2)
Quarter: 2014Q1

REPORT INFORMATION
  Report Type: Spontaneous
  Country: IT (occurrence: IT)
  Receive Date: 20140110
  Receipt Date: 20140204
  Transmission Date: 20141002
  Serious: Yes (Other)
  Sender: FDA-Public Use
  Company Number: IT-ACTAVIS-2013-24317

PATIENT
  Age: 76 Year
  Sex: Male

DRUGS (3)
  1. PARACETAMOL (UNKNOWN) [Suspect]
     Indication: HYPERPYREXIA
     Dosage: 1 G, TOTAL
     Route: 048
     Dates: start: 20131218, end: 20131218
  2. AMARYL [Concomitant]
     Indication: PRODUCT USED FOR UNKNOWN INDICATION
     Dosage: 2 MG, UNKNOWN
     Route: 048
     Dates: start: 20070101, end: 20131219
  3. METFORMIN [Concomitant]
     Indication: PRODUCT USED FOR UNKNOWN INDICATION
     Dosage: 1000 MG, UNKNOWN
     Route: 065
     Dates: start: 20070101, end: 20131219

REACTIONS (2)
  - Angioedema [Unknown]
  - Urticaria [Unknown]
